FAERS Safety Report 5698705-8 (Version None)
Quarter: 2008Q2

REPORT INFORMATION
  Report Type: 
  Country: None (occurrence: None)
  Receive Date: 20080408
  Receipt Date: 20070226
  Transmission Date: 20081010
  Serious: No
  Sender: FDA-Public Use
  Company Number: US-BAYER-US-2007-006836

PATIENT
  Age: 59 Year
  Sex: Female

DRUGS (2)
  1. MENOSTAR [Suspect]
     Indication: HOT FLUSH
     Route: 062
     Dates: start: 20060101, end: 20060101
  2. MENOSTAR [Suspect]
     Route: 062
     Dates: start: 20070101

REACTIONS (1)
  - APPLICATION SITE ERYTHEMA [None]
